FAERS Safety Report 25404571 (Version 1)
Quarter: 2025Q2

REPORT INFORMATION
  Report Type: Spontaneous
  Country: US (occurrence: US)
  Receive Date: 20250606
  Receipt Date: 20250606
  Transmission Date: 20250717
  Serious: No
  Sender: AUROBINDO
  Company Number: US-AUROBINDO-AUR-APL-2024-046413

PATIENT
  Sex: Female

DRUGS (3)
  1. LORATADINE [Suspect]
     Active Substance: LORATADINE
     Indication: Muscle spasms
     Route: 065
     Dates: start: 20240911
  2. LORATADINE [Suspect]
     Active Substance: LORATADINE
     Route: 065
     Dates: start: 20240912
  3. LORATADINE [Suspect]
     Active Substance: LORATADINE
     Route: 065
     Dates: start: 20240913

REACTIONS (1)
  - Drug ineffective [Unknown]
